FAERS Safety Report 9914629 (Version 2)
Quarter: 2014Q1

REPORT INFORMATION
  Report Type: Report from Study
  Country: US (occurrence: US)
  Receive Date: 20140220
  Receipt Date: 20140220
  Transmission Date: 20141002
  Serious: Yes (Hospitalization)
  Sender: FDA-Public Use
  Company Number: PHHY2013US123256

PATIENT
  Age: 9 Year
  Sex: Male
  Weight: 35.5 kg

DRUGS (2)
  1. ICL670A [Suspect]
     Indication: SICKLE CELL ANAEMIA
     Dosage: 750 MG, UNK
     Route: 048
     Dates: start: 20110913
  2. ICL670A [Suspect]
     Dosage: 1000 UNK, UNK
     Route: 048
     Dates: end: 20140211

REACTIONS (7)
  - Cough [Unknown]
  - Dyspnoea [Unknown]
  - Chest pain [Unknown]
  - Wheezing [Unknown]
  - Constipation [Recovered/Resolved]
  - Pain in extremity [Recovered/Resolved]
  - Abdominal pain [Recovered/Resolved]
